FAERS Safety Report 13161206 (Version 1)
Quarter: 2017Q1

REPORT INFORMATION
  Report Type: Spontaneous
  Country: US (occurrence: US)
  Receive Date: 20170130
  Receipt Date: 20170130
  Transmission Date: 20170428
  Serious: Yes (Hospitalization, Other)
  Sender: FDA-Public Use
  Company Number: US-CONCORDIA PHARMACEUTICALS INC.-GSH201701-000522

PATIENT
  Sex: Female

DRUGS (3)
  1. ZONEGRAN [Suspect]
     Active Substance: ZONISAMIDE
  2. ZONEGRAN [Suspect]
     Active Substance: ZONISAMIDE
  3. METFORMIN [Concomitant]
     Active Substance: METFORMIN HYDROCHLORIDE

REACTIONS (4)
  - Pelvic pain [Recovering/Resolving]
  - Intestinal dilatation [Recovering/Resolving]
  - Cough [Not Recovered/Not Resolved]
  - Inflammatory bowel disease [Recovering/Resolving]
